FAERS Safety Report 11095034 (Version 1)
Quarter: 2015Q2

REPORT INFORMATION
  Report Type: Spontaneous
  Country: US (occurrence: US)
  Receive Date: 20150506
  Receipt Date: 20150506
  Transmission Date: 20150821
  Serious: No
  Sender: FDA-Public Use
  Company Number: US-SANOFI-AVENTIS-2011SA062991

PATIENT
  Age: 41 Year
  Sex: Male

DRUGS (3)
  1. APIDRA [Suspect]
     Active Substance: INSULIN GLULISINE
     Indication: TYPE 1 DIABETES MELLITUS
     Dosage: FOR LOT NO. 3F083A OR 3FO83A-  DOSAGE 35-40 U
     Route: 058
     Dates: start: 201109
  2. APIDRA [Suspect]
     Active Substance: INSULIN GLULISINE
     Indication: TYPE 1 DIABETES MELLITUS
     Dosage: FOR LOT NO. 3F083A OR 3FO83A-  DOSAGE 35-40 U
     Route: 058
     Dates: start: 201109
  3. APIDRA [Suspect]
     Active Substance: INSULIN GLULISINE
     Indication: TYPE 1 DIABETES MELLITUS
     Dosage: FOR LOT NO. 3F083A OR 3FO83A-  DOSAGE 35-40 U
     Route: 058
     Dates: start: 201109

REACTIONS (6)
  - Product quality issue [Unknown]
  - Blood glucose increased [Recovered/Resolved]
  - Drug ineffective [Unknown]
  - Drug dose omission [Unknown]
  - Blood glucose decreased [Recovered/Resolved]
  - Malaise [Recovered/Resolved]

NARRATIVE: CASE EVENT DATE: 201109
